FAERS Safety Report 5806956-4 (Version None)
Quarter: 2008Q3

REPORT INFORMATION
  Report Type: 
  Country: None (occurrence: None)
  Receive Date: 20080711
  Receipt Date: 20080703
  Transmission Date: 20090109
  Serious: Yes (Other)
  Sender: FDA-Public Use
  Company Number: DE-WYE-G01814308

PATIENT
  Sex: Male

DRUGS (2)
  1. VENLAFAXINE HCL [Suspect]
     Indication: DEPRESSION
     Route: 048
     Dates: start: 20071101, end: 20080101
  2. VENLAFAXINE HCL [Suspect]
     Indication: SOMATISATION DISORDER
     Route: 048
     Dates: start: 20080101

REACTIONS (10)
  - ANXIETY [None]
  - APATHY [None]
  - DEPERSONALISATION [None]
  - DRUG WITHDRAWAL SYNDROME [None]
  - FATIGUE [None]
  - FEELING OF DESPAIR [None]
  - LETHARGY [None]
  - PARAESTHESIA [None]
  - RESTLESSNESS [None]
  - SUICIDAL IDEATION [None]
